FAERS Safety Report 10190930 (Version 1)
Quarter: 2014Q2

REPORT INFORMATION
  Report Type: Spontaneous
  Country: US (occurrence: None)
  Receive Date: 20140521
  Receipt Date: 20140521
  Transmission Date: 20141212
  Serious: No
  Sender: FDA-Public Use
  Company Number: None

PATIENT
  Age: 72 Year
  Sex: Male
  Weight: 108.86 kg

DRUGS (2)
  1. CEPHALEXIN 500MG [Suspect]
     Indication: ANTIBIOTIC THERAPY
     Dosage: 1 CAPSULE QID ORAL
  2. ATORVOSTATIN [Concomitant]

REACTIONS (1)
  - Rash [None]
